FAERS Safety Report 5698037-8 (Version None)
Quarter: 2008Q2

REPORT INFORMATION
  Report Type: 
  Country: None (occurrence: None)
  Receive Date: 20080408
  Receipt Date: 20080328
  Transmission Date: 20081010
  Serious: Yes (Death, Hospitalization)
  Sender: FDA-Public Use
  Company Number: BG-PFIZER INC-2008028507

PATIENT
  Age: 47 Year
  Sex: Male

DRUGS (4)
  1. CADUET [Suspect]
     Indication: HYPERTENSION
     Dosage: TEXT:5MG/10MG DAILY: TDD 5MG/10MG
     Route: 048
  2. CADUET [Suspect]
     Indication: DYSLIPIDAEMIA
  3. CORVITOL [Concomitant]
     Route: 048
     Dates: start: 20030101, end: 20080207
  4. TERTENSIF [Concomitant]
     Route: 048
     Dates: start: 20030101, end: 20080207

REACTIONS (5)
  - AGITATION [None]
  - BRAIN OEDEMA [None]
  - CONFUSIONAL STATE [None]
  - FALL [None]
  - SUBARACHNOID HAEMORRHAGE [None]
